FAERS Safety Report 13095842 (Version 21)
Quarter: 2018Q4

REPORT INFORMATION
  Report Type: Report from Study
  Country: US (occurrence: US)
  Receive Date: 20170109
  Receipt Date: 20181017
  Transmission Date: 20190204
  Serious: Yes (Death, Life-Threatening, Hospitalization)
  Sender: FDA-Public Use
  Company Number: US-ROCHE-1874437

PATIENT
  Age: 68 Year
  Sex: Female
  Weight: 51.5 kg

DRUGS (20)
  1. CARBOPLATIN. [Suspect]
     Active Substance: CARBOPLATIN
     Indication: NON-SMALL CELL LUNG CANCER STAGE IV
     Dosage: MOST RECENT DOSE (519 MG) PRIOR TO CONJUNCTIVITIS, HEMOLYTIC UREMIC SYNDROME AND RASH (FACE NECK BAC
     Route: 042
     Dates: start: 20161220
  2. ALOXI [Concomitant]
     Active Substance: PALONOSETRON HYDROCHLORIDE
     Indication: PREMEDICATION
     Route: 065
     Dates: start: 20161220, end: 20161220
  3. NORMAL SALINE [Concomitant]
     Active Substance: SODIUM CHLORIDE
     Indication: PROPHYLAXIS AGAINST DEHYDRATION
     Route: 065
     Dates: start: 20161231, end: 20170110
  4. NORMAL SALINE [Concomitant]
     Active Substance: SODIUM CHLORIDE
     Route: 065
     Dates: start: 20170101, end: 20170110
  5. VANCOMYCIN [Concomitant]
     Active Substance: VANCOMYCIN
     Indication: INFECTION PROPHYLAXIS
     Route: 065
     Dates: start: 20161231, end: 20170101
  6. ATEZOLIZUMAB. [Suspect]
     Active Substance: ATEZOLIZUMAB
     Indication: NON-SMALL CELL LUNG CANCER STAGE IV
     Dosage: MOST RECENT DOSE (1200 MG) OF ATEZOLIZUMAB PRIOR TO CONJUNCTIVITIS, HEMOLYTIC UREMIC SYNDROME AND RA
     Route: 042
     Dates: start: 20161220
  7. ASPIRIN. [Concomitant]
     Active Substance: ASPIRIN
     Indication: CARDIOVASCULAR EVENT PROPHYLAXIS
     Route: 065
     Dates: start: 2013
  8. FOLIC ACID. [Concomitant]
     Active Substance: FOLIC ACID
     Indication: VITAMIN SUPPLEMENTATION
     Route: 065
     Dates: start: 2003
  9. MORPHINE [Concomitant]
     Active Substance: MORPHINE
     Indication: PAIN
     Route: 065
     Dates: start: 20170101, end: 20170124
  10. POTASSIUM CHLORIDE. [Concomitant]
     Active Substance: POTASSIUM CHLORIDE
     Indication: HYPOKALAEMIA
     Route: 065
     Dates: start: 20170104, end: 20170116
  11. TRIAMCINOLONE [Concomitant]
     Active Substance: TRIAMCINOLONE
     Indication: RASH
     Route: 065
     Dates: start: 20170124
  12. ZARXIO [Concomitant]
     Active Substance: FILGRASTIM-SNDZ
     Indication: ANAEMIA
     Route: 065
     Dates: start: 20170103, end: 20170103
  13. AMLODIPINE [Concomitant]
     Active Substance: AMLODIPINE BESYLATE
     Indication: HYPERTENSION
     Route: 065
     Dates: start: 2013
  14. BENADRYL [Concomitant]
     Active Substance: DIPHENHYDRAMINE HYDROCHLORIDE
     Indication: PREMEDICATION
     Route: 065
     Dates: start: 20161220, end: 20161227
  15. FAMOTID [Concomitant]
     Indication: PROPHYLAXIS
     Route: 065
     Dates: start: 20170111
  16. ACETAMINOPHEN. [Concomitant]
     Active Substance: ACETAMINOPHEN
     Indication: EYE PAIN
     Route: 065
     Dates: start: 20161231, end: 20170122
  17. INSULIN LISPRO [Concomitant]
     Active Substance: INSULIN LISPRO
     Indication: BLOOD GLUCOSE INCREASED
     Route: 065
     Dates: start: 20170104, end: 20170119
  18. NAB-PACLITAXEL [Suspect]
     Active Substance: PACLITAXEL
     Indication: NON-SMALL CELL LUNG CANCER STAGE IV
     Dosage: MOST RECENT DOSE PRIOR TO EVENTS: 27/DEC/2016 AT 12:00 AT 157 MG?STARTING DOSE AS PER PROTOCOL
     Route: 042
     Dates: start: 20161220
  19. TYLENOL [Concomitant]
     Active Substance: ACETAMINOPHEN
     Indication: ARTHRALGIA
     Route: 065
     Dates: start: 20160901, end: 20161230
  20. HEPARIN [Concomitant]
     Active Substance: HEPARIN SODIUM
     Indication: THROMBOSIS PROPHYLAXIS
     Route: 065
     Dates: start: 20170101, end: 20170124

REACTIONS (5)
  - Death [Fatal]
  - Haemolytic uraemic syndrome [Not Recovered/Not Resolved]
  - Conjunctivitis [Recovered/Resolved]
  - Mucosal inflammation [Recovered/Resolved]
  - Drug eruption [Recovered/Resolved]

NARRATIVE: CASE EVENT DATE: 20161231
